FAERS Safety Report 4409757-7 (Version None)
Quarter: 2004Q3

REPORT INFORMATION
  Report Type: 
  Country: None (occurrence: None)
  Receive Date: 20040727
  Receipt Date: 20040727
  Transmission Date: 20050211
  Serious: Yes (Hospitalization)
  Sender: FDA-Public Use
  Company Number: None

PATIENT
  Age: 79 Year
  Sex: Female

DRUGS (1)
  1. FERRLECIT [Suspect]
     Indication: ANAEMIA
     Dosage: 125MG  Q 14DAYS  INTRAVENOUS
     Route: 042
     Dates: start: 20040317, end: 20040428

REACTIONS (3)
  - CHEST PAIN [None]
  - FACIAL PAIN [None]
  - PAIN IN JAW [None]
